FAERS Safety Report 8434624-1 (Version None)
Quarter: 2012Q2

REPORT INFORMATION
  Report Type: 
  Country: None (occurrence: None)
  Receive Date: 20120614
  Receipt Date: 20120608
  Transmission Date: 20120825
  Serious: No
  Sender: FDA-Public Use
  Company Number: US-BIOGENIDEC-2012BI020451

PATIENT
  Age: 36 Year
  Sex: Female

DRUGS (2)
  1. GABAPENTIN [Concomitant]
     Indication: PARAESTHESIA
     Dates: start: 20090101
  2. AVONEX [Suspect]
     Indication: MULTIPLE SCLEROSIS
     Route: 030
     Dates: start: 20100201

REACTIONS (6)
  - TEMPERATURE INTOLERANCE [None]
  - DYSURIA [None]
  - BRONCHITIS [None]
  - THIRST [None]
  - BALANCE DISORDER [None]
  - INFLUENZA LIKE ILLNESS [None]
